FAERS Safety Report 6749760-5 (Version None)
Quarter: 2010Q2

REPORT INFORMATION
  Report Type: 
  Country: None (occurrence: None)
  Receive Date: 20100527
  Receipt Date: 20100526
  Transmission Date: 20101027
  Serious: Yes (Hospitalization)
  Sender: FDA-Public Use
  Company Number: LTI2010A00104

PATIENT
  Age: 74 Year
  Sex: Male

DRUGS (3)
  1. OGASTORO 15 MG (LANSOPRAZOLE) [Suspect]
     Indication: PROPHYLAXIS AGAINST GASTROINTESTINAL ULCER
     Dosage: 15MG (15MG, 1 IN 1D)
     Route: 048
     Dates: start: 20091204, end: 20091207
  2. KETOPROFEN [Suspect]
     Indication: MUSCULOSKELETAL PAIN
     Dosage: 300MG (100MG, 3 IN 1D)
     Route: 048
     Dates: start: 20091204, end: 20091207
  3. AMOXICILLIN AND CLAVULANATE POTASSIUM [Suspect]
     Indication: INFECTION
     Dosage: 4 DF (2DF, 2 IN 1D)
     Route: 048
     Dates: start: 20091204, end: 20091207

REACTIONS (6)
  - APHTHOUS STOMATITIS [None]
  - CAPILLARITIS [None]
  - PHLEBITIS [None]
  - PYREXIA [None]
  - TOXIC SKIN ERUPTION [None]
  - VASCULITIS [None]
